FAERS Safety Report 12088869 (Version 1)
Quarter: 2016Q1

REPORT INFORMATION
  Report Type: Spontaneous
  Country: CH (occurrence: CH)
  Receive Date: 20160218
  Receipt Date: 20160218
  Transmission Date: 20160526
  Serious: Yes (Life-Threatening, Hospitalization, Other)
  Sender: FDA-Public Use
  Company Number: CH-GLAXOSMITHKLINE-CH2016019671

PATIENT
  Age: 71 Year
  Sex: Female
  Weight: 62 kg

DRUGS (10)
  1. VENTOLIN [Suspect]
     Active Substance: ALBUTEROL SULFATE
     Indication: SPIROMETRY
     Route: 055
     Dates: start: 20151218
  2. VANNAIR [Concomitant]
     Active Substance: BUDESONIDE\FORMOTEROL FUMARATE DIHYDRATE
     Indication: ASTHMA
     Route: 055
     Dates: end: 20151218
  3. ZITHROMAX 250 MG FILMTABLETTEN [Concomitant]
     Indication: ANTIINFLAMMATORY THERAPY
     Route: 048
     Dates: start: 20151228
  4. AMLODIPINE [Concomitant]
     Active Substance: AMLODIPINE BESYLATE
     Route: 048
     Dates: start: 20151230, end: 20160108
  5. MELATONINE [Concomitant]
     Active Substance: MELATONIN
     Route: 048
     Dates: start: 20160102
  6. NEXIUM [Concomitant]
     Active Substance: ESOMEPRAZOLE MAGNESIUM
     Route: 048
     Dates: start: 20151218
  7. PULMICORT TURBUHALER [Suspect]
     Active Substance: BUDESONIDE
     Indication: ASTHMA
     Dosage: 0.5 MG, UNK
     Route: 055
     Dates: start: 20151231, end: 20151231
  8. VENTOLIN [Concomitant]
     Active Substance: ALBUTEROL SULFATE
     Indication: ASTHMA
     Route: 055
  9. ATROVENT [Concomitant]
     Active Substance: IPRATROPIUM BROMIDE
     Indication: ASTHMA
     Route: 055
     Dates: start: 20151218
  10. SINGULAIR FILMTABLETTEN [Concomitant]
     Indication: ASTHMA
     Route: 048
     Dates: start: 20151221

REACTIONS (6)
  - Hyperventilation [Recovered/Resolved]
  - Respiratory arrest [Recovered/Resolved]
  - Altered state of consciousness [Recovered/Resolved]
  - Dyspnoea [Recovered/Resolved]
  - Asthma [Recovered/Resolved]
  - Asthma [Recovered/Resolved]

NARRATIVE: CASE EVENT DATE: 20151218
